FAERS Safety Report 12884598 (Version 2)
Quarter: 2016Q4

REPORT INFORMATION
  Report Type: Spontaneous
  Country: JP (occurrence: JP)
  Receive Date: 20161026
  Receipt Date: 20161121
  Transmission Date: 20170207
  Serious: Yes (Other)
  Sender: FDA-Public Use
  Company Number: JP-009507513-1610JPN013160

PATIENT

DRUGS (3)
  1. SOVALDI [Suspect]
     Active Substance: SOFOSBUVIR
     Dosage: DAILY DOSE UNKNOWN, SINGLE DOSE
     Route: 048
  2. REBETOL [Suspect]
     Active Substance: RIBAVIRIN
     Route: 048
  3. SOVALDI [Suspect]
     Active Substance: SOFOSBUVIR
     Route: 048

REACTIONS (11)
  - Lung neoplasm malignant [Unknown]
  - Headache [Unknown]
  - Rash [Unknown]
  - Fatigue [Unknown]
  - Pyrexia [Unknown]
  - Nausea [Unknown]
  - Renal impairment [Unknown]
  - Blood bilirubin increased [Unknown]
  - Anaemia [Unknown]
  - Dizziness [Unknown]
  - Alanine aminotransferase increased [Unknown]
